FAERS Safety Report 9015471 (Version 1)
Quarter: 2013Q1

REPORT INFORMATION
  Report Type: Spontaneous
  Country: US (occurrence: US)
  Receive Date: 20130116
  Receipt Date: 20130116
  Transmission Date: 20140127
  Serious: Yes (Hospitalization, Other)
  Sender: FDA-Public Use
  Company Number: US-009507513-1301USA003871

PATIENT
  Age: 55 Year
  Sex: Male

DRUGS (5)
  1. MONTELUKAST SODIUM [Suspect]
     Indication: IMMUNE TOLERANCE INDUCTION
  2. ASPIRIN [Suspect]
     Route: 048
  3. SIMVASTATIN [Concomitant]
  4. GLUCOSAMINE [Concomitant]
  5. OMEPRAZOLE [Concomitant]

REACTIONS (3)
  - Pancreatitis [Unknown]
  - Allergic respiratory disease [Unknown]
  - Abdominal pain upper [Unknown]
